FAERS Safety Report 21314046 (Version 3)
Quarter: 2022Q4

REPORT INFORMATION
  Report Type: Report from Study
  Country: NL (occurrence: NL)
  Receive Date: 20220909
  Receipt Date: 20221019
  Transmission Date: 20230112
  Serious: Yes (Hospitalization, Other)
  Sender: FDA-Public Use
  Company Number: NL-ABBVIE-22K-114-4533053-00

PATIENT
  Age: 78 Year
  Sex: Male

DRUGS (2)
  1. CARBIDOPA\LEVODOPA [Suspect]
     Active Substance: CARBIDOPA\LEVODOPA
     Indication: Parkinson^s disease
     Dosage: MD: 6.5ML; CD: 6.2ML/H; ED: 3.0ML; END: 3.0ML;CND: 4.3ML/H;
     Route: 050
     Dates: start: 20130404
  2. CARBIDOPA\LEVODOPA [Suspect]
     Active Substance: CARBIDOPA\LEVODOPA

REACTIONS (12)
  - Fall [Not Recovered/Not Resolved]
  - Cerebral haemorrhage [Unknown]
  - Hypersomnia [Not Recovered/Not Resolved]
  - Seizure [Not Recovered/Not Resolved]
  - Memory impairment [Not Recovered/Not Resolved]
  - Stress [Not Recovered/Not Resolved]
  - Contusion [Unknown]
  - Hallucination, visual [Not Recovered/Not Resolved]
  - Dyskinesia [Not Recovered/Not Resolved]
  - Therapeutic product effect incomplete [Not Recovered/Not Resolved]
  - Hospitalisation [Recovered/Resolved]
  - Subdural haematoma [Unknown]
